FAERS Safety Report 7882301-8 (Version None)
Quarter: 2011Q4

REPORT INFORMATION
  Report Type: 
  Country: None (occurrence: None)
  Receive Date: 20111101
  Receipt Date: 20110613
  Transmission Date: 20120403
  Serious: No
  Sender: FDA-Public Use
  Company Number: US-AMGEN-USASP2011030404

PATIENT
  Sex: Male

DRUGS (2)
  1. ENBREL [Suspect]
     Indication: PSORIATIC ARTHROPATHY
  2. ENBREL [Suspect]
     Indication: PSORIASIS
     Dosage: 50 MG, QWK
     Dates: start: 20060101

REACTIONS (8)
  - CHILLS [None]
  - PSORIASIS [None]
  - NIGHT SWEATS [None]
  - PSORIATIC ARTHROPATHY [None]
  - TONGUE ULCERATION [None]
  - HEADACHE [None]
  - OROPHARYNGEAL PAIN [None]
  - LYMPHADENOPATHY [None]
